FAERS Safety Report 12778315 (Version 1)
Quarter: 2016Q3

REPORT INFORMATION
  Report Type: Spontaneous
  Country: DZ (occurrence: DZ)
  Receive Date: 20160926
  Receipt Date: 20160926
  Transmission Date: 20161109
  Serious: Yes (Hospitalization, Other)
  Sender: FDA-Public Use
  Company Number: DZ-ABBVIE-16K-003-1734404-00

PATIENT
  Age: 22 Year
  Sex: Male
  Weight: 48 kg

DRUGS (3)
  1. MESALAZINE [Concomitant]
     Active Substance: MESALAMINE
     Indication: INFLAMMATORY BOWEL DISEASE
     Route: 048
     Dates: start: 2013
  2. HUMIRA [Suspect]
     Active Substance: ADALIMUMAB
     Indication: INFLAMMATORY BOWEL DISEASE
  3. HUMIRA [Suspect]
     Active Substance: ADALIMUMAB
     Indication: ANKYLOSING SPONDYLITIS
     Route: 058
     Dates: start: 20141223, end: 20160627

REACTIONS (5)
  - Productive cough [Recovering/Resolving]
  - Lymphadenopathy mediastinal [Unknown]
  - Lung infiltration [Unknown]
  - Pneumonia [Unknown]
  - Disseminated tuberculosis [Recovering/Resolving]

NARRATIVE: CASE EVENT DATE: 20160617
